FAERS Safety Report 19172239 (Version 1)
Quarter: 2021Q2

REPORT INFORMATION
  Report Type: Spontaneous
  Country: US (occurrence: US)
  Receive Date: 20210423
  Receipt Date: 20210423
  Transmission Date: 20210717
  Serious: No
  Sender: FDA-Public Use
  Company Number: US-TEVA-2021-US-1900866

PATIENT
  Sex: Female

DRUGS (1)
  1. ALPRAZOLAM. [Suspect]
     Active Substance: ALPRAZOLAM
     Indication: INSOMNIA
     Dosage: TAKING FOR 8 YEARS/TAKING 1 TABLET AT NIGHT
     Route: 065

REACTIONS (2)
  - Dizziness [Unknown]
  - Drug ineffective [Unknown]
